FAERS Safety Report 5220609-5 (Version None)
Quarter: 2007Q1

REPORT INFORMATION
  Report Type: 
  Country: None (occurrence: None)
  Receive Date: 20070126
  Receipt Date: 20070118
  Transmission Date: 20070707
  Serious: Yes (Hospitalization)
  Sender: FDA-Public Use
  Company Number: DE-BAYER-200710062BVD

PATIENT
  Age: 51 Year
  Sex: Female
  Weight: 85 kg

DRUGS (3)
  1. AVELOX [Suspect]
     Indication: BRONCHOPNEUMONIA
     Route: 048
     Dates: start: 20061202, end: 20061202
  2. BERLOSIN [Concomitant]
     Route: 065
  3. TAMOX [Concomitant]
     Route: 065

REACTIONS (3)
  - BLISTER [None]
  - LEUKOCYTOCLASTIC VASCULITIS [None]
  - RASH [None]
